FAERS Safety Report 5264383-5 (Version None)
Quarter: 2007Q1

REPORT INFORMATION
  Report Type: 
  Country: None (occurrence: None)
  Receive Date: 20070309
  Receipt Date: 20070306
  Transmission Date: 20070707
  Serious: Yes (Death)
  Sender: FDA-Public Use
  Company Number: 163-20785-07030318

PATIENT
  Age: 77 Year
  Sex: Female

DRUGS (1)
  1. THALOMID [Suspect]
     Indication: MYELOFIBROSIS
     Dosage: 150 MG, DAILY, ORAL
     Route: 048
     Dates: start: 20061101, end: 20070101

REACTIONS (1)
  - BONE MARROW FAILURE [None]
